FAERS Safety Report 4963202-1 (Version None)
Quarter: 2006Q2

REPORT INFORMATION
  Report Type: 
  Country: None (occurrence: None)
  Receive Date: 20060405
  Receipt Date: 20060327
  Transmission Date: 20061013
  Serious: Yes (Life-Threatening, Hospitalization)
  Sender: FDA-Public Use
  Company Number: ES-AVENTIS-200611891EU

PATIENT
  Age: 65 Year
  Sex: Male
  Weight: 80 kg

DRUGS (6)
  1. SEGURIL [Suspect]
     Indication: HYPERTENSIVE HEART DISEASE
     Route: 048
     Dates: end: 20051120
  2. FOSFOSODA [Suspect]
     Indication: X-RAY
     Route: 048
     Dates: start: 20051120, end: 20051120
  3. ENEMA CASEN [Suspect]
     Indication: GASTROINTESTINAL DISORDER
     Route: 054
     Dates: start: 20051117, end: 20051117
  4. DIGOXIN [Concomitant]
     Indication: VENTRICULAR FIBRILLATION
     Route: 048
     Dates: end: 20051120
  5. METRONIDAZOLE [Concomitant]
     Indication: MENINGITIS BACTERIAL
     Route: 048
     Dates: start: 20051110, end: 20051219
  6. CEFOTAXIME [Concomitant]
     Indication: MENINGITIS BACTERIAL
     Route: 042
     Dates: start: 20051102, end: 20051119

REACTIONS (6)
  - ACIDOSIS [None]
  - CARDIAC ARREST [None]
  - HYPERPHOSPHATAEMIA [None]
  - HYPOCALCAEMIA [None]
  - HYPOKALAEMIA [None]
  - TORSADE DE POINTES [None]
